FAERS Safety Report 12631689 (Version 3)
Quarter: 2017Q4

REPORT INFORMATION
  Report Type: Spontaneous
  Country: US (occurrence: US)
  Receive Date: 20160808
  Receipt Date: 20171013
  Transmission Date: 20180320
  Serious: No
  Sender: FDA-Public Use
  Company Number: US-BEH-2015055345

PATIENT
  Sex: Male
  Weight: 111.13 kg

DRUGS (44)
  1. HIZENTRA [Suspect]
     Active Substance: HUMAN IMMUNOGLOBULIN G
     Dosage: UNK
     Route: 058
  2. MOBIC [Concomitant]
     Active Substance: MELOXICAM
  3. CIPROFLOXACIN. [Concomitant]
     Active Substance: CIPROFLOXACIN
  4. EPIPEN [Concomitant]
     Active Substance: EPINEPHRINE
  5. CLONIDINE. [Concomitant]
     Active Substance: CLONIDINE
  6. LANTUS [Concomitant]
     Active Substance: INSULIN GLARGINE
  7. LEVOFLOXACIN. [Concomitant]
     Active Substance: LEVOFLOXACIN
  8. HIZENTRA [Suspect]
     Active Substance: HUMAN IMMUNOGLOBULIN G
     Indication: IMMUNODEFICIENCY COMMON VARIABLE
     Route: 058
  9. LIDOCAINE/PRILOCAINE [Concomitant]
     Active Substance: LIDOCAINE\PRILOCAINE
  10. CEPHALEXIN. [Concomitant]
     Active Substance: CEPHALEXIN
  11. REQUIP [Concomitant]
     Active Substance: ROPINIROLE HYDROCHLORIDE
  12. ACETAMINOPHEN. [Concomitant]
     Active Substance: ACETAMINOPHEN
  13. ONE A DAYS MENS TABLET [Concomitant]
  14. HIZENTRA [Suspect]
     Active Substance: HUMAN IMMUNOGLOBULIN G
     Dosage: 8 G, QW
     Route: 058
  15. RANITIDINE. [Concomitant]
     Active Substance: RANITIDINE
  16. LOSARTAN. [Concomitant]
     Active Substance: LOSARTAN
  17. TYLENOL WITH CODEINE [Concomitant]
     Active Substance: ACETAMINOPHEN\CODEINE PHOSPHATE
  18. SYNTHROID [Concomitant]
     Active Substance: LEVOTHYROXINE SODIUM
  19. GLIPIZIDE. [Concomitant]
     Active Substance: GLIPIZIDE
  20. ADVAIR HFA [Concomitant]
     Active Substance: FLUTICASONE PROPIONATE\SALMETEROL XINAFOATE
  21. FERROUS SULFATE. [Concomitant]
     Active Substance: FERROUS SULFATE
  22. DIPHENHYDRAMINE. [Concomitant]
     Active Substance: DIPHENHYDRAMINE
  23. IBUPROFEN. [Concomitant]
     Active Substance: IBUPROFEN
  24. ALLOPURINOL. [Concomitant]
     Active Substance: ALLOPURINOL
  25. XANAX [Concomitant]
     Active Substance: ALPRAZOLAM
  26. BUSPIRONE [Concomitant]
     Active Substance: BUSPIRONE HYDROCHLORIDE
  27. WARFARIN [Concomitant]
     Active Substance: WARFARIN
  28. ASPIRIN. [Concomitant]
     Active Substance: ASPIRIN
  29. METFORMIN [Concomitant]
     Active Substance: METFORMIN HYDROCHLORIDE
  30. FENTANYL-NS [Concomitant]
  31. ZOFRAN [Concomitant]
     Active Substance: ONDANSETRON HYDROCHLORIDE
  32. ZOLOFT [Concomitant]
     Active Substance: SERTRALINE HYDROCHLORIDE
  33. HIZENTRA [Suspect]
     Active Substance: HUMAN IMMUNOGLOBULIN G
     Dosage: UNK
     Route: 058
  34. PRAVACHOL [Concomitant]
     Active Substance: PRAVASTATIN SODIUM
  35. VITAMIN B12 [Concomitant]
     Active Substance: CYANOCOBALAMIN
  36. LASIX [Concomitant]
     Active Substance: FUROSEMIDE
  37. ALBUTEROL. [Concomitant]
     Active Substance: ALBUTEROL
  38. OXYGEN. [Concomitant]
     Active Substance: OXYGEN
  39. ALDACTONE [Concomitant]
     Active Substance: SPIRONOLACTONE
  40. PRINIVIL [Concomitant]
     Active Substance: LISINOPRIL
  41. METAMUCIL [Concomitant]
     Active Substance: PLANTAGO SEED
  42. FLAGYL [Concomitant]
     Active Substance: METRONIDAZOLE\METRONIDAZOLE HYDROCHLORIDE
  43. AMBIEN [Concomitant]
     Active Substance: ZOLPIDEM TARTRATE
  44. MORPHINE [Concomitant]
     Active Substance: MORPHINE

REACTIONS (1)
  - Sinusitis [Unknown]
